FAERS Safety Report 10064458 (Version 1)
Quarter: 2014Q2

REPORT INFORMATION
  Report Type: Spontaneous
  Country: US (occurrence: None)
  Receive Date: 20140407
  Receipt Date: 20140407
  Transmission Date: 20141212
  Serious: Yes (Other)
  Sender: FDA-Public Use
  Company Number: None

PATIENT
  Age: 53 Year
  Sex: Female
  Weight: 92.99 kg

DRUGS (1)
  1. ICY HOT [Suspect]
     Indication: MYALGIA
     Dates: start: 20140405, end: 20140405

REACTIONS (2)
  - Application site burn [None]
  - Chemical injury [None]
